FAERS Safety Report 10081101 (Version 5)
Quarter: 2014Q3

REPORT INFORMATION
  Report Type: Report from Study
  Country: US (occurrence: US)
  Receive Date: 20140416
  Receipt Date: 20140704
  Transmission Date: 20150326
  Serious: Yes (Hospitalization)
  Sender: FDA-Public Use
  Company Number: US-ROCHE-1362373

PATIENT
  Age: 66 Year
  Sex: Female
  Weight: 55 kg

DRUGS (21)
  1. COBIMETINIB [Suspect]
     Active Substance: COBIMETINIB
     Indication: METASTATIC MALIGNANT MELANOMA
     Dosage: LAST DOSE PRIOR TO ONSET OF ACUTE KIDNEY INJURY: 10/FEB/2014? LAST DOSE PRIOR TO ONSET OF GRANULOMAT
     Route: 048
     Dates: start: 20121113, end: 20140210
  2. SYSTANE [Concomitant]
     Active Substance: HYPROMELLOSE 2910 (4000 MPA.S)
     Indication: EYE IRRITATION
     Dosage: OU (BOTH EYES) PRN
     Route: 065
     Dates: start: 20131130, end: 20140101
  3. ACETAMINOFEN [Concomitant]
     Active Substance: ACETAMINOPHEN
     Indication: HEADACHE
     Route: 048
     Dates: start: 20140225
  4. VEMURAFENIB [Suspect]
     Active Substance: VEMURAFENIB
     Indication: METASTATIC MALIGNANT MELANOMA
     Dosage: LAST DOSE PRIOR TO ONSET OF ACUTE KIDNEY INJURY: 10/FEB/2014? LAST DOSE PRIOR TO ONSET OF GRANULOMAT
     Route: 048
     Dates: start: 20121113, end: 20140210
  5. PROZAC [Concomitant]
     Active Substance: FLUOXETINE HYDROCHLORIDE
     Indication: DEPRESSION
     Route: 048
     Dates: start: 20121219
  6. ANTHELIOS XL [Concomitant]
     Dosage: 0.2 CC DAILY PRN
     Route: 061
     Dates: start: 20130424
  7. ZOFRAN [Concomitant]
     Active Substance: ONDANSETRON HYDROCHLORIDE
     Indication: NAUSEA
     Dosage: TID PRN
     Route: 048
     Dates: start: 20131009, end: 20140104
  8. COBIMETINIB [Suspect]
     Active Substance: COBIMETINIB
     Route: 048
     Dates: start: 20140703
  9. IMODIUM [Concomitant]
     Active Substance: LOPERAMIDE HYDROCHLORIDE
     Indication: DIARRHOEA
     Route: 048
     Dates: start: 20121201, end: 20140114
  10. VITAMIN D2 [Concomitant]
     Active Substance: ERGOCALCIFEROL
     Dosage: X 1 WEEK
     Route: 048
     Dates: start: 20131223
  11. ATORVASTATIN [Concomitant]
     Active Substance: ATORVASTATIN
     Indication: HYPERLIPIDAEMIA
     Route: 048
     Dates: start: 19960101
  12. IBUPROPHENUM [Concomitant]
     Active Substance: IBUPROFEN
     Indication: PAIN
     Route: 048
     Dates: start: 20050801
  13. COLACE [Concomitant]
     Active Substance: DOCUSATE SODIUM
     Indication: CONSTIPATION
     Dosage: 1-2 TAB BID PRN
     Route: 048
     Dates: start: 20130813
  14. FERROUS FUMARATE [Concomitant]
     Active Substance: FERROUS FUMARATE
     Indication: ANAEMIA
     Dosage: 1-2 X A DAY PRN AS DIRECTED
     Route: 048
     Dates: start: 20131009
  15. ALAVERT ALLERGY [Concomitant]
     Active Substance: LORATADINE
     Indication: SEASONAL ALLERGY
     Route: 048
     Dates: start: 20120701
  16. FLUTICASONE [Concomitant]
     Active Substance: FLUTICASONE\FLUTICASONE PROPIONATE
     Dosage: 1 PUFF NASAL SPRAY
     Route: 045
     Dates: start: 20140225, end: 20140228
  17. LIMU [Concomitant]
     Dosage: 2 OUNCES
     Route: 048
     Dates: start: 20130820, end: 20140104
  18. AMLODIPINE [Concomitant]
     Active Substance: AMLODIPINE BESYLATE
     Indication: HYPERTENSION
     Route: 048
     Dates: start: 19960101
  19. PREDNISOLONE ACETATE EYE DROPS [Concomitant]
     Indication: EYE PAIN
     Dosage: OU (BOTH EYES) 4  DAY
     Route: 065
     Dates: start: 20140101
  20. ALEVE [Concomitant]
     Active Substance: NAPROXEN SODIUM
     Indication: BACK PAIN
     Dosage: 1-2 TABS DAILY
     Route: 048
     Dates: start: 20140113
  21. MELATONIN [Concomitant]
     Active Substance: MELATONIN
     Indication: INSOMNIA
     Dosage: BEDTIME AS NEEDED
     Route: 048
     Dates: start: 20140224

REACTIONS (2)
  - Tubulointerstitial nephritis [Recovered/Resolved with Sequelae]
  - Renal failure acute [Recovering/Resolving]

NARRATIVE: CASE EVENT DATE: 20140224
